FAERS Safety Report 7299553-8 (Version None)
Quarter: 2011Q1

REPORT INFORMATION
  Report Type: 
  Country: None (occurrence: None)
  Receive Date: 20110217
  Receipt Date: 20110211
  Transmission Date: 20110831
  Serious: Yes (Hospitalization)
  Sender: FDA-Public Use
  Company Number: DE-PFIZER INC-2010067330

PATIENT
  Age: 80 Year
  Sex: Female

DRUGS (12)
  1. CITALOPRAM [Concomitant]
     Indication: DEPRESSION
     Dosage: 10 MG, 1X/DAY
     Route: 048
     Dates: start: 20091110
  2. NALOXONE/OXYCODONE [Concomitant]
     Indication: PAIN
     Dosage: 10/5 MG, 2X/DAY
     Route: 048
     Dates: start: 20091110
  3. PANTOPRAZOLE [Suspect]
     Indication: PROPHYLAXIS AGAINST GASTROINTESTINAL ULCER
     Dosage: 40 MG, 1X/DAY
     Route: 048
     Dates: start: 20090116
  4. FERROUS SULFATE TAB [Concomitant]
     Indication: IRON DEFICIENCY ANAEMIA
     Dosage: 100 MG, 1X/DAY
     Route: 048
     Dates: start: 20090116, end: 20091209
  5. ORELOX [Suspect]
     Indication: PERINEPHRIC ABSCESS
     Dosage: 100 MG, 2X/DAY
     Route: 048
     Dates: start: 20091121, end: 20091208
  6. METRONIDAZOLE [Suspect]
     Indication: PERINEPHRIC ABSCESS
     Dosage: 500 MG, 3X/DAY
     Route: 041
     Dates: start: 20091110, end: 20091120
  7. TOREM [Concomitant]
     Indication: HYPERTENSION
     Dosage: 5 MG, 1X/DAY
     Route: 048
     Dates: start: 20071101
  8. SPIRONOLACTONE [Concomitant]
     Indication: HYPERTENSION
     Dosage: 50 MG, 1X/DAY
     Route: 048
  9. METRONIDAZOLE [Suspect]
     Dosage: 400 MG, 3X/DAY
     Route: 048
     Dates: start: 20091121, end: 20091208
  10. CEFTRIAXONE SODIUM [Suspect]
     Indication: PERINEPHRIC ABSCESS
     Dosage: 2 G, 1X/DAY
     Route: 040
     Dates: start: 20091110, end: 20091120
  11. METAMIZOLE MAGNESIUM [Concomitant]
     Indication: PAIN
     Dosage: 750 MG, 3X/DAY
     Route: 048
     Dates: start: 20091110
  12. DIGITOXIN [Concomitant]
     Indication: ATRIAL FIBRILLATION
     Dosage: 0.07 MG, 1X/DAY
     Route: 048
     Dates: start: 20091110

REACTIONS (1)
  - CLOSTRIDIUM DIFFICILE COLITIS [None]
